FAERS Safety Report 17041542 (Version 1)
Quarter: 2019Q4

REPORT INFORMATION
  Report Type: Report from Study
  Country: US (occurrence: US)
  Receive Date: 20191118
  Receipt Date: 20191118
  Transmission Date: 20200122
  Serious: Yes (Death, Life-Threatening)
  Sender: FDA-Public Use
  Company Number: US-UCBSA-2019001047

PATIENT
  Age: 86 Year
  Sex: Female
  Weight: 60.3 kg

DRUGS (4)
  1. LACOSAMIDE. [Suspect]
     Active Substance: LACOSAMIDE
     Indication: EPILEPSY
     Dosage: CUTTING OF 150 MG TABLET AND POSSIBLY ADD UPTO 100 MG
     Route: 048
     Dates: start: 2018
  2. LACOSAMIDE. [Suspect]
     Active Substance: LACOSAMIDE
     Dosage: 100 MILLIGRAM, 2X/DAY (BID)
     Route: 048
     Dates: start: 20180831
  3. LACOSAMIDE. [Suspect]
     Active Substance: LACOSAMIDE
     Indication: PARTIAL SEIZURES
     Dosage: 50 MG
     Route: 048
     Dates: start: 20180824, end: 2018
  4. LACOSAMIDE. [Suspect]
     Active Substance: LACOSAMIDE
     Dosage: CUTTING OF 150 MG TABLET AND POSSIBLY ADD UPTO 100 MG
     Route: 048
     Dates: start: 20190903

REACTIONS (5)
  - Malaise [Unknown]
  - Death [Fatal]
  - Alopecia [Recovered/Resolved]
  - Intentional product misuse [Unknown]
  - Pulmonary fibrosis [Not Recovered/Not Resolved]

NARRATIVE: CASE EVENT DATE: 2018
